FAERS Safety Report 5842271-0 (Version None)
Quarter: 2008Q3

REPORT INFORMATION
  Report Type: 
  Country: None (occurrence: None)
  Receive Date: 20080812
  Receipt Date: 20080730
  Transmission Date: 20090109
  Serious: Yes (Other)
  Sender: FDA-Public Use
  Company Number: ES-ROCHE-579042

PATIENT
  Age: 38 Year
  Sex: Male

DRUGS (5)
  1. ENFUVIRTIDE [Suspect]
     Indication: ANTIRETROVIRAL THERAPY
     Route: 058
  2. SAQUINAVIR [Suspect]
     Indication: ANTIRETROVIRAL THERAPY
     Route: 058
  3. LOPINAVIR/RITONAVIR [Suspect]
     Indication: ANTIRETROVIRAL THERAPY
     Route: 058
  4. TENOFOVIR [Suspect]
     Indication: ANTIRETROVIRAL THERAPY
     Route: 058
  5. SULFAMETHOXAZOLE AND TRIMETHOPRIM [Concomitant]

REACTIONS (2)
  - EXTRADURAL ABSCESS [None]
  - OSTEOMYELITIS [None]
